FAERS Safety Report 16983722 (Version 1)
Quarter: 2019Q4

REPORT INFORMATION
  Report Type: Spontaneous
  Country: US (occurrence: US)
  Receive Date: 20191101
  Receipt Date: 20191101
  Transmission Date: 20200122
  Serious: No
  Sender: FDA-Public Use
  Company Number: US-BAYER-2019-190521

PATIENT
  Age: 89 Year
  Sex: Male

DRUGS (2)
  1. NUBEQA [Suspect]
     Active Substance: DAROLUTAMIDE
     Indication: METASTASES TO BONE
     Dosage: 300 MG, QD
     Dates: start: 20191018
  2. NUBEQA [Suspect]
     Active Substance: DAROLUTAMIDE
     Indication: HORMONE-REFRACTORY PROSTATE CANCER
     Dosage: 600 MG, BID
     Route: 048
     Dates: start: 201909

REACTIONS (4)
  - Off label use [None]
  - Product supply issue [None]
  - Joint swelling [Not Recovered/Not Resolved]
  - Product use in unapproved indication [None]
